FAERS Safety Report 11081718 (Version 1)
Quarter: 2015Q2

REPORT INFORMATION
  Report Type: Report from Study
  Country: JP (occurrence: JP)
  Receive Date: 20150501
  Receipt Date: 20150501
  Transmission Date: 20150821
  Serious: Yes (Other)
  Sender: FDA-Public Use
  Company Number: JP-TEVA-559495ISR

PATIENT

DRUGS (3)
  1. CISPLATIN. [Suspect]
     Active Substance: CISPLATIN
     Indication: HEPATOCELLULAR CARCINOMA
     Dosage: 20 MG/M2 DAILY; ON DAY1, 8, AND 15
     Route: 042
  2. SORAFENIB [Suspect]
     Active Substance: SORAFENIB
     Dosage: 800 MILLIGRAM DAILY;
     Route: 042
  3. SORAFENIB [Suspect]
     Active Substance: SORAFENIB
     Indication: HEPATOCELLULAR CARCINOMA
     Dosage: 400 MILLIGRAM DAILY; CONTINOUSLY
     Route: 042

REACTIONS (1)
  - Hepatic encephalopathy [Unknown]
